FAERS Safety Report 19369181 (Version 2)
Quarter: 2023Q2

REPORT INFORMATION
  Report Type: Spontaneous
  Country: US (occurrence: US)
  Receive Date: 20210602
  Receipt Date: 20230426
  Transmission Date: 20230722
  Serious: Yes (Other)
  Sender: FDA-Public Use
  Company Number: US-SA-SAC20210601000545

PATIENT
  Age: 6 Year
  Sex: Male

DRUGS (8)
  1. ALPROLIX [Suspect]
     Active Substance: EFTRENONACOG ALFA
     Indication: Factor IX deficiency
     Dosage: 2100 IU, EVERY 7 DAYS AS NEEDED
     Route: 042
     Dates: start: 201503
  2. ALPROLIX [Suspect]
     Active Substance: EFTRENONACOG ALFA
     Indication: Factor IX deficiency
     Dosage: 2100 IU, EVERY 7 DAYS AS NEEDED
     Route: 042
     Dates: start: 201503
  3. ALPROLIX [Suspect]
     Active Substance: EFTRENONACOG ALFA
     Dosage: 2100 IU, EVERY 7 DAYS AS NEEDED
     Route: 042
     Dates: start: 201503
  4. ALPROLIX [Suspect]
     Active Substance: EFTRENONACOG ALFA
     Dosage: 2100 IU, EVERY 7 DAYS AS NEEDED
     Route: 042
     Dates: start: 201503
  5. ALPROLIX [Suspect]
     Active Substance: EFTRENONACOG ALFA
     Dosage: 534 IU, PRN EVERY 7 DAYS
     Route: 042
     Dates: start: 20210218
  6. ALPROLIX [Suspect]
     Active Substance: EFTRENONACOG ALFA
     Dosage: 534 IU, PRN EVERY 7 DAYS
     Route: 042
     Dates: start: 20210218
  7. ALPROLIX [Suspect]
     Active Substance: EFTRENONACOG ALFA
     Dosage: 1111 IU, PRN EVERY 7 DAYS
     Route: 042
  8. ALPROLIX [Suspect]
     Active Substance: EFTRENONACOG ALFA
     Dosage: 1111 IU, PRN EVERY 7 DAYS
     Route: 042

REACTIONS (2)
  - Haemorrhage [Unknown]
  - Haemorrhage [Not Recovered/Not Resolved]

NARRATIVE: CASE EVENT DATE: 20210525
